FAERS Safety Report 7418098-5 (Version None)
Quarter: 2011Q2

REPORT INFORMATION
  Report Type: 
  Country: None (occurrence: None)
  Receive Date: 20110415
  Receipt Date: 20110404
  Transmission Date: 20111010
  Serious: Yes (Hospitalization, Other)
  Sender: FDA-Public Use
  Company Number: US-ELI_LILLY_AND_COMPANY-US201101004351

PATIENT
  Sex: Female
  Weight: 49.433 kg

DRUGS (16)
  1. FORTEO [Suspect]
     Indication: OSTEOPOROSIS
     Dosage: 20 UG, DAILY (1/D)
     Dates: start: 20100223
  2. PRIMIDONE [Concomitant]
     Dosage: UNK, UNKNOWN
  3. BOICIL [Concomitant]
  4. CALCIUM [Concomitant]
  5. MAGNESIUM [Concomitant]
  6. QUERCETIN [Concomitant]
  7. EVENING PRIMROSE OIL [Concomitant]
  8. LOVAZA [Concomitant]
  9. CO Q-10 [Concomitant]
  10. VITAMIN D [Concomitant]
  11. DIGESTIVE ENZYMES [Concomitant]
  12. ESTRING [Concomitant]
  13. M.V.I. [Concomitant]
  14. ASCORBIC ACID [Concomitant]
  15. INDERAL [Concomitant]
     Indication: TREMOR
     Dosage: UNK, UNKNOWN
  16. VITAMIN B COMPLEX CAP [Concomitant]

REACTIONS (1)
  - BREAST OPERATION [None]
